FAERS Safety Report 7135188-5 (Version None)
Quarter: 2010Q4

REPORT INFORMATION
  Report Type: 
  Country: None (occurrence: None)
  Receive Date: 20101203
  Receipt Date: 20101201
  Transmission Date: 20110411
  Serious: No
  Sender: FDA-Public Use
  Company Number: US-PFIZER INC-2010162175

PATIENT
  Sex: Male
  Weight: 126.53 kg

DRUGS (2)
  1. VIAGRA [Suspect]
     Indication: ERECTILE DYSFUNCTION
     Dosage: 50 MG, AS NEEDED
     Route: 048
  2. CELEBREX [Concomitant]
     Indication: EPICONDYLITIS
     Dosage: UNK, 1X/DAY
     Route: 048

REACTIONS (1)
  - DRUG EFFECT DECREASED [None]
